FAERS Safety Report 19381923 (Version 1)
Quarter: 2021Q2

REPORT INFORMATION
  Report Type: Spontaneous
  Country: DK (occurrence: DK)
  Receive Date: 20210607
  Receipt Date: 20210607
  Transmission Date: 20210717
  Serious: Yes (Hospitalization)
  Sender: FDA-Public Use
  Company Number: NVSC2021DK121858

PATIENT
  Age: 67 Year
  Sex: Female
  Weight: 75 kg

DRUGS (8)
  1. BISOPROLOL [Suspect]
     Active Substance: BISOPROLOL
     Dosage: 12.5 MG, QD
     Route: 065
     Dates: start: 20210401
  2. ADENOSINE. [Suspect]
     Active Substance: ADENOSINE
     Indication: SUPRAVENTRICULAR TACHYCARDIA
     Dosage: 5 MG, TOTAL
     Route: 042
     Dates: start: 20210401
  3. BISOPROLOL [Suspect]
     Active Substance: BISOPROLOL
     Indication: SUPRAVENTRICULAR TACHYCARDIA
     Dosage: 5 MG, QD
     Route: 048
     Dates: start: 20170801, end: 20210401
  4. ADENOSINE. [Suspect]
     Active Substance: ADENOSINE
     Dosage: 10 MG
     Route: 042
     Dates: start: 20210401
  5. ZOLEDRONSYRE HOSPIRA [Suspect]
     Active Substance: ZOLEDRONIC ACID
     Indication: BONE DISORDER
     Dosage: 100 ML
     Route: 042
     Dates: start: 20191022
  6. ZOLEDRONSYRE HOSPIRA [Suspect]
     Active Substance: ZOLEDRONIC ACID
     Dosage: 100 ML
     Route: 042
     Dates: start: 20210128
  7. ZOLEDRONSYRE HOSPIRA [Suspect]
     Active Substance: ZOLEDRONIC ACID
     Dosage: 100 ML
     Route: 042
     Dates: start: 20200715
  8. AROMASIN [Suspect]
     Active Substance: EXEMESTANE
     Indication: BREAST CANCER
     Dosage: 25 MG, QD
     Route: 048
     Dates: start: 20190320

REACTIONS (1)
  - Supraventricular tachycardia [Recovered/Resolved]

NARRATIVE: CASE EVENT DATE: 20210401
